FAERS Safety Report 7112317-0 (Version None)
Quarter: 2010Q4

REPORT INFORMATION
  Report Type: 
  Country: None (occurrence: None)
  Receive Date: 20101119
  Receipt Date: 20100713
  Transmission Date: 20110411
  Serious: No
  Sender: FDA-Public Use
  Company Number: A0870200A

PATIENT
  Age: 62 Year
  Sex: Male

DRUGS (4)
  1. AVODART [Suspect]
     Indication: BENIGN PROSTATIC HYPERPLASIA
     Route: 048
     Dates: start: 20100201, end: 20100712
  2. BLOOD PRESSURE MEDICATION [Concomitant]
  3. LIPITOR [Concomitant]
  4. PROPRANOLOL [Concomitant]

REACTIONS (3)
  - EJACULATION DISORDER [None]
  - ORGASM ABNORMAL [None]
  - QUALITY OF LIFE DECREASED [None]
